FAERS Safety Report 7667979 (Version 4)
Quarter: 2013Q4

REPORT INFORMATION
  Report Type: Spontaneous
  Country: US (occurrence: US)
  Receive Date: 20101115
  Receipt Date: 20131230
  Transmission Date: 20140711
  Serious: Yes (Other)
  Sender: FDA-Public Use
  Company Number: US-BAYER-201040795NA

PATIENT
  Age: 21 Year
  Sex: Female
  Weight: 54 kg

DRUGS (9)
  1. YAZ [Suspect]
     Indication: ORAL CONTRACEPTION
     Dosage: UNK
     Route: 048
     Dates: start: 200704, end: 200904
  2. YASMIN [Suspect]
     Indication: ORAL CONTRACEPTION
     Dosage: UNK
     Route: 048
     Dates: start: 200704, end: 200904
  3. OCELLA [Suspect]
     Dosage: UNK
     Route: 048
     Dates: start: 200704
  4. PAROXETINE [Concomitant]
     Dosage: 20 MG, DAILY
     Route: 048
     Dates: start: 20071204
  5. ALPRAZOLAM [Concomitant]
     Indication: ANXIETY
     Dosage: 0.5 MG, THREE TIMES DAILY AS NEEDED
     Route: 048
     Dates: start: 20071204
  6. METOCLOPRAMIDE [Concomitant]
     Dosage: UNK
  7. FLUCONAZOLE [Concomitant]
     Dosage: UNK
  8. LORATADINE [Concomitant]
     Dosage: UNK
  9. MAALOX [Concomitant]
     Dosage: UNK

REACTIONS (2)
  - Gallbladder disorder [None]
  - Cholecystitis chronic [None]
